FAERS Safety Report 6595931-0 (Version None)
Quarter: 2010Q1

REPORT INFORMATION
  Report Type: 
  Country: None (occurrence: None)
  Receive Date: 20100216
  Receipt Date: 20100205
  Transmission Date: 20100710
  Serious: Yes (Hospitalization)
  Sender: FDA-Public Use
  Company Number: CIP10000279

PATIENT
  Age: 75 Year
  Sex: Female

DRUGS (1)
  1. MACRODANTIN [Suspect]
     Dosage: 100 MG DAILY, ORAL
     Route: 048
     Dates: start: 20080101

REACTIONS (1)
  - PNEUMONIA [None]
